FAERS Safety Report 19946876 (Version 1)
Quarter: 2021Q4

REPORT INFORMATION
  Report Type: Report from Study
  Country: DE (occurrence: DE)
  Receive Date: 20211012
  Receipt Date: 20211012
  Transmission Date: 20220303
  Serious: No
  Sender: FDA-Public Use
  Company Number: DE-KARYOPHARM-2021KPT001140

PATIENT
  Age: 35 Year
  Sex: Female

DRUGS (1)
  1. SELINEXOR [Suspect]
     Active Substance: SELINEXOR
     Indication: Endometrial cancer
     Dosage: 80 MG, WEEKLY
     Route: 048
     Dates: start: 20210528, end: 20210815

REACTIONS (1)
  - Endometrial cancer metastatic [Unknown]

NARRATIVE: CASE EVENT DATE: 20210801
